FAERS Safety Report 4263856-1 (Version None)
Quarter: 2004Q1

REPORT INFORMATION
  Report Type: 
  Country: None (occurrence: None)
  Receive Date: 20040106
  Receipt Date: 20031229
  Transmission Date: 20041129
  Serious: Yes (Hospitalization)
  Sender: FDA-Public Use
  Company Number: PHNU2003DE04498

PATIENT
  Age: 80 Year
  Sex: Female
  Weight: 58 kg

DRUGS (6)
  1. TEGRETOL-XR [Suspect]
     Indication: DIABETIC NEUROPATHY
     Dosage: 200 MG, TID
     Route: 048
     Dates: start: 20021001, end: 20031006
  2. CONCOR [Suspect]
     Indication: HYPERTENSION
     Dosage: 5 MG, BID
     Route: 048
     Dates: start: 20010101, end: 20030926
  3. ACETYLSALICYLIC ACID SRT [Concomitant]
     Indication: CORONARY ARTERY DISEASE
     Dosage: 100 MG, QD
     Route: 048
     Dates: start: 20010101
  4. CAPTOPRIL AND HYDROCHLOROTHIAZIDE [Concomitant]
     Indication: HYPERTENSION
     Dosage: 1 DF, QD
     Route: 048
     Dates: start: 20010101, end: 20030926
  5. INSUMAN [Concomitant]
     Indication: DIABETES MELLITUS
     Dosage: 36 IU, QD
     Route: 058
     Dates: start: 20011101
  6. NORVASC [Concomitant]
     Indication: HYPERTENSION
     Dosage: 5 MG, QD
     Route: 048
     Dates: start: 20010101

REACTIONS (9)
  - AORTIC VALVE INCOMPETENCE [None]
  - ATRIOVENTRICULAR BLOCK SECOND DEGREE [None]
  - BUNDLE BRANCH BLOCK LEFT [None]
  - DIZZINESS [None]
  - DRUG INTERACTION [None]
  - ELECTROCARDIOGRAM REPOLARISATION ABNORMALITY [None]
  - FALL [None]
  - HEART RATE DECREASED [None]
  - MITRAL VALVE INCOMPETENCE [None]
